FAERS Safety Report 6079037-5 (Version None)
Quarter: 2009Q1

REPORT INFORMATION
  Report Type: 
  Country: None (occurrence: None)
  Receive Date: 20090216
  Receipt Date: 20090202
  Transmission Date: 20090719
  Serious: Yes (Other)
  Sender: FDA-Public Use
  Company Number: US-ROCHE-612114

PATIENT
  Age: 8 Year
  Sex: Female

DRUGS (1)
  1. TAMIFLU [Suspect]
     Route: 065

REACTIONS (2)
  - DELIRIUM [None]
  - HALLUCINATION [None]
